FAERS Safety Report 12491398 (Version 1)
Quarter: 2016Q2

REPORT INFORMATION
  Report Type: Spontaneous
  Country: DE (occurrence: DE)
  Receive Date: 20160623
  Receipt Date: 20160623
  Transmission Date: 20160815
  Serious: Yes (Other)
  Sender: FDA-Public Use
  Company Number: DE-DRREDDYS-GER/GER/16/0080677

PATIENT
  Age: 26 Year
  Sex: Female
  Weight: 65 kg

DRUGS (6)
  1. VENLAFAXINE [Suspect]
     Active Substance: VENLAFAXINE HYDROCHLORIDE
     Indication: PRODUCT USED FOR UNKNOWN INDICATION
     Route: 048
     Dates: start: 20160122, end: 20160204
  2. VENLAFAXINE [Suspect]
     Active Substance: VENLAFAXINE HYDROCHLORIDE
     Dates: start: 20160323, end: 20160411
  3. VENLAFAXINE [Suspect]
     Active Substance: VENLAFAXINE HYDROCHLORIDE
     Dates: start: 20160308, end: 20160322
  4. VENLAFAXINE [Suspect]
     Active Substance: VENLAFAXINE HYDROCHLORIDE
     Dates: start: 20160205, end: 20160307
  5. VENLAFAXINE [Suspect]
     Active Substance: VENLAFAXINE HYDROCHLORIDE
     Dates: start: 20160412, end: 20160421
  6. VENLAFAXINE [Suspect]
     Active Substance: VENLAFAXINE HYDROCHLORIDE
     Dates: start: 20160422, end: 20160426

REACTIONS (14)
  - Body temperature increased [Recovering/Resolving]
  - Fatigue [Recovering/Resolving]
  - Nausea [Recovering/Resolving]
  - Suicidal ideation [Recovering/Resolving]
  - Nightmare [Recovering/Resolving]
  - Tearfulness [Recovering/Resolving]
  - Migraine [Recovering/Resolving]
  - Hyperhidrosis [Recovering/Resolving]
  - Aggression [Recovering/Resolving]
  - Tremor [Recovering/Resolving]
  - Drug withdrawal syndrome [Recovering/Resolving]
  - Limb discomfort [Recovering/Resolving]
  - Hyperacusis [Recovering/Resolving]
  - Dizziness [Recovering/Resolving]

NARRATIVE: CASE EVENT DATE: 20160427
